FAERS Safety Report 15234071 (Version 3)
Quarter: 2018Q3

REPORT INFORMATION
  Report Type: Report from Study
  Country: AU (occurrence: AU)
  Receive Date: 20180802
  Receipt Date: 20180920
  Transmission Date: 20181010
  Serious: Yes (Other)
  Sender: FDA-Public Use
  Company Number: AU-BIOGEN-2016BI00273288

PATIENT
  Age: 62 Year
  Sex: Female

DRUGS (1)
  1. TECFIDERA [Suspect]
     Active Substance: DIMETHYL FUMARATE
     Indication: MULTIPLE SCLEROSIS
     Dosage: MAINTENANCE DOSE
     Route: 048
     Dates: start: 20141105, end: 20180821

REACTIONS (18)
  - Vertigo [Unknown]
  - Depressed mood [Unknown]
  - Argyria [Unknown]
  - Pain [Unknown]
  - Haemoglobin decreased [Not Recovered/Not Resolved]
  - Flushing [Not Recovered/Not Resolved]
  - Gait disturbance [Not Recovered/Not Resolved]
  - Spinal column injury [Recovered/Resolved]
  - Basal cell carcinoma [Unknown]
  - Fatigue [Not Recovered/Not Resolved]
  - Skin papilloma [Recovered/Resolved]
  - Lymphocyte count decreased [Not Recovered/Not Resolved]
  - Thermal burn [Recovered/Resolved]
  - Peripheral swelling [Not Recovered/Not Resolved]
  - Fall [Recovered/Resolved]
  - Intervertebral disc disorder [Not Recovered/Not Resolved]
  - Weight increased [Not Recovered/Not Resolved]
  - Mobility decreased [Not Recovered/Not Resolved]

NARRATIVE: CASE EVENT DATE: 201603
